FAERS Safety Report 4560908-3 (Version None)
Quarter: 2005Q1

REPORT INFORMATION
  Report Type: 
  Country: None (occurrence: None)
  Receive Date: 20050126
  Receipt Date: 20031016
  Transmission Date: 20050727
  Serious: No
  Sender: FDA-Public Use
  Company Number: US-BRISTOL-MYERS SQUIBB COMPANY-12412896

PATIENT
  Age: 76 Year
  Sex: Male
  Weight: 69 kg

DRUGS (2)
  1. GLUCOPHAGE [Suspect]
     Indication: GLUCOSE TOLERANCE IMPAIRED
     Dosage: THERAPY STOPPED 08-DEC-2003, THEN RESTARTED FOR RE-CHALLENGE
     Route: 048
     Dates: start: 20030501
  2. ATENOLOL [Concomitant]

REACTIONS (1)
  - ECZEMA [None]
